FAERS Safety Report 15487238 (Version 1)
Quarter: 2018Q4

REPORT INFORMATION
  Report Type: Spontaneous
  Country: US (occurrence: US)
  Receive Date: 20181011
  Receipt Date: 20181011
  Transmission Date: 20190205
  Serious: Yes (Life-Threatening, Hospitalization, Disabling, Other)
  Sender: FDA-Public Use
  Company Number: None

PATIENT
  Age: 39 Year
  Sex: Female

DRUGS (1)
  1. PITOCIN [Suspect]
     Active Substance: OXYTOCIN
     Indication: LABOUR INDUCTION
     Dates: start: 20180508, end: 20180509

REACTIONS (4)
  - Drug hypersensitivity [None]
  - Anaphylactoid syndrome of pregnancy [None]
  - Brain injury [None]
  - Coma [None]

NARRATIVE: CASE EVENT DATE: 20180509
